FAERS Safety Report 23555481 (Version 1)
Quarter: 2024Q1

REPORT INFORMATION
  Report Type: Spontaneous
  Country: US (occurrence: US)
  Receive Date: 20240222
  Receipt Date: 20240222
  Transmission Date: 20240410
  Serious: Yes (Other)
  Sender: FDA-Public Use
  Company Number: US-LANTHEUS HOLDINGS, INC.-LMI-2023-01233

PATIENT
  Age: 80 Year
  Sex: Female

DRUGS (1)
  1. DEFINITY [Suspect]
     Active Substance: PERFLUTREN
     Indication: Echocardiogram
     Dosage: 2.5-3 ML (1.3 ML DEFINITY PREPARED IN 8.7 ML NS)
     Route: 042
     Dates: start: 20231013, end: 20231013

REACTIONS (10)
  - Unresponsive to stimuli [Recovered/Resolved]
  - Seizure [Recovered/Resolved]
  - Musculoskeletal stiffness [Recovered/Resolved]
  - Dysphonia [Recovered/Resolved]
  - Retrograde amnesia [Recovered/Resolved]
  - Urinary incontinence [Recovered/Resolved]
  - Exophthalmos [Recovered/Resolved]
  - Cough [Recovered/Resolved]
  - Dizziness [Recovered/Resolved]
  - Fatigue [Not Recovered/Not Resolved]

NARRATIVE: CASE EVENT DATE: 20231013
